FAERS Safety Report 8134549-5 (Version None)
Quarter: 2012Q1

REPORT INFORMATION
  Report Type: 
  Country: None (occurrence: None)
  Receive Date: 20120214
  Receipt Date: 20120202
  Transmission Date: 20120608
  Serious: Yes (Hospitalization)
  Sender: FDA-Public Use
  Company Number: US-SANOFI-AVENTIS-2012SA007139

PATIENT
  Sex: Female

DRUGS (2)
  1. LANTUS [Suspect]
     Dosage: LANTUS SOLOSTAR PRODUCT START DATE: 5 YEARS DOSE:45 UNIT(S)
     Route: 058
     Dates: start: 20070101
  2. SOLOSTAR [Suspect]
     Dosage: LANTUS SOLOSTAR PRODUCT START DATE 5 YEARS

REACTIONS (1)
  - LUNG DISORDER [None]
